FAERS Safety Report 5322859-6 (Version None)
Quarter: 2007Q2

REPORT INFORMATION
  Report Type: 
  Country: None (occurrence: None)
  Receive Date: 20070511
  Receipt Date: 20070502
  Transmission Date: 20071010
  Serious: Yes (Other)
  Sender: FDA-Public Use
  Company Number: US-PFIZER INC-2007035777

PATIENT
  Sex: Female
  Weight: 50 kg

DRUGS (8)
  1. XALATAN [Suspect]
     Indication: GLAUCOMA
  2. FOSAMAX [Concomitant]
  3. VITAMIN CAP [Concomitant]
  4. CALCIUM WITH VITAMIN D [Concomitant]
  5. ACETYLSALICYLIC ACID SRT [Concomitant]
  6. OMEGA-3 [Concomitant]
  7. NAMENDA [Concomitant]
  8. ADVAIR DISKUS 100/50 [Concomitant]

REACTIONS (4)
  - ASTHMA [None]
  - CHOKING [None]
  - POSTNASAL DRIP [None]
  - SINUS DISORDER [None]
